FAERS Safety Report 12574691 (Version 1)
Quarter: 2016Q3

REPORT INFORMATION
  Report Type: Spontaneous
  Country: US (occurrence: US)
  Receive Date: 20160720
  Receipt Date: 20160720
  Transmission Date: 20161109
  Serious: No
  Sender: FDA-Public Use
  Company Number: US-ASTELLAS-2015US022012

PATIENT
  Age: 69 Year
  Sex: Female

DRUGS (2)
  1. FUROSEMIDE. [Concomitant]
     Active Substance: FUROSEMIDE
     Indication: PRODUCT USED FOR UNKNOWN INDICATION
     Dosage: UNK UNK, UNKNOWN FREQ.
     Route: 065
  2. VESICARE [Suspect]
     Active Substance: SOLIFENACIN SUCCINATE
     Indication: PRODUCT USED FOR UNKNOWN INDICATION
     Route: 065
     Dates: end: 20150622

REACTIONS (10)
  - Constipation [Unknown]
  - Hypertension [Unknown]
  - Dry mouth [Unknown]
  - Fatigue [Unknown]
  - Vision blurred [Recovering/Resolving]
  - Joint swelling [Unknown]
  - Urinary tract infection [Unknown]
  - Malaise [Unknown]
  - Urinary retention [Unknown]
  - Cataract [Unknown]
